FAERS Safety Report 20238939 (Version 1)
Quarter: 2021Q4

REPORT INFORMATION
  Report Type: Spontaneous
  Country: US (occurrence: None)
  Receive Date: 20211227
  Receipt Date: 20211227
  Transmission Date: 20220303
  Serious: Yes (Hospitalization)
  Sender: FDA-Public Use
  Company Number: None

PATIENT
  Age: 71 Year
  Sex: Male
  Weight: 83 kg

DRUGS (1)
  1. HYDROXYUREA [Suspect]
     Active Substance: HYDROXYUREA
     Indication: Thrombocytosis
     Dosage: OTHER FREQUENCY : AM;?
     Route: 048
     Dates: start: 20210721, end: 20211003

REACTIONS (8)
  - Pancytopenia [None]
  - Blister [None]
  - Rash [None]
  - Cough [None]
  - Tremor [None]
  - Pyrexia [None]
  - Pain [None]
  - Decreased appetite [None]

NARRATIVE: CASE EVENT DATE: 20211003
